FAERS Safety Report 19371919 (Version 1)
Quarter: 2021Q2

REPORT INFORMATION
  Report Type: Report from Study
  Country: DZ (occurrence: DZ)
  Receive Date: 20210604
  Receipt Date: 20210604
  Transmission Date: 20210717
  Serious: Yes (Death, Other)
  Sender: FDA-Public Use
  Company Number: DZ-CIPLA LTD.-2021DZ03528

PATIENT

DRUGS (7)
  1. 5?FU [FLUOROURACIL] [Suspect]
     Active Substance: FLUOROURACIL
     Dosage: 600 MILLIGRAM/SQ. METER, ONCE IN EVERY 15 DAY
     Dates: start: 20210407, end: 20210407
  2. ZOPHREN [ONDANSETRON] [Concomitant]
     Active Substance: ONDANSETRON
     Indication: PRODUCT USED FOR UNKNOWN INDICATION
     Dosage: UNK, 2CP
     Route: 065
  3. FOLIC ACID. [Suspect]
     Active Substance: FOLIC ACID
     Indication: COLORECTAL CANCER METASTATIC
     Dosage: 200 MILLIGRAM/SQ. METER, ONCE IN 15 DAYS
     Route: 042
     Dates: start: 20210407, end: 20210407
  4. PERFALGAN [Concomitant]
     Active Substance: ACETAMINOPHEN
     Indication: PRODUCT USED FOR UNKNOWN INDICATION
     Dosage: UNK, 1CP
     Route: 065
  5. BEVACIZUMAB. [Suspect]
     Active Substance: BEVACIZUMAB
     Indication: COLORECTAL CANCER METASTATIC
     Dosage: 405 MILLIGRAM, EVERY 15 DAYS
     Route: 042
     Dates: start: 20210203, end: 20210407
  6. IRINOTECAN [Suspect]
     Active Substance: IRINOTECAN
     Indication: COLORECTAL CANCER METASTATIC
     Dosage: 180 MILLIGRAM/SQ. METER, ONCE IN 15 DAYS
     Route: 042
     Dates: start: 20210407, end: 20210407
  7. 5?FU [FLUOROURACIL] [Suspect]
     Active Substance: FLUOROURACIL
     Indication: COLORECTAL CANCER METASTATIC
     Dosage: 100 MILLIGRAM/SQ. METER, ONCE IN EVERY 15 DAY
     Route: 040
     Dates: start: 20210407, end: 20210407

REACTIONS (1)
  - Intestinal obstruction [None]

NARRATIVE: CASE EVENT DATE: 20210416
